FAERS Safety Report 15716810 (Version 1)
Quarter: 2018Q4

REPORT INFORMATION
  Report Type: Spontaneous
  Country: US (occurrence: US)
  Receive Date: 20181129
  Receipt Date: 20181129
  Transmission Date: 20190205
  Serious: No
  Sender: FDA-Public Use
  Company Number: None

PATIENT

DRUGS (3)
  1. MINI BAG PLUS (MBP) [Concomitant]
  2. AMPICILLIN [Suspect]
     Active Substance: AMPICILLIN
  3. ADD-VANTAGE (DEVICE) [Concomitant]
     Active Substance: DEVICE

REACTIONS (1)
  - Product barcode issue [None]
